FAERS Safety Report 7900550-7 (Version None)
Quarter: 2011Q4

REPORT INFORMATION
  Report Type: 
  Country: None (occurrence: None)
  Receive Date: 20111108
  Receipt Date: 20111019
  Transmission Date: 20120403
  Serious: No
  Sender: FDA-Public Use
  Company Number: US-PFIZER INC-2011257315

PATIENT
  Sex: Female

DRUGS (2)
  1. AVINZA [Suspect]
     Indication: PAIN
     Route: 051
  2. FENTANYL [Suspect]
     Route: 062

REACTIONS (2)
  - DRUG INEFFECTIVE [None]
  - PAIN [None]
